FAERS Safety Report 15343724 (Version 2)
Quarter: 2018Q3

REPORT INFORMATION
  Report Type: Spontaneous
  Country: AR (occurrence: AR)
  Receive Date: 20180903
  Receipt Date: 20180905
  Transmission Date: 20181010
  Serious: Yes (Death, Hospitalization, Other)
  Sender: FDA-Public Use
  Company Number: AR-B.I. PHARMACEUTICALS,INC./RIDGEFIELD-2018-BI-043790

PATIENT
  Age: 61 Year
  Sex: Male

DRUGS (6)
  1. DIGOXIN. [Concomitant]
     Active Substance: DIGOXIN
     Indication: ATRIAL FIBRILLATION
     Route: 065
  2. PRADAXA [Suspect]
     Active Substance: DABIGATRAN ETEXILATE MESYLATE
     Indication: ATRIAL FIBRILLATION
     Route: 065
  3. METFORMIN [Concomitant]
     Active Substance: METFORMIN HYDROCHLORIDE
     Indication: DIABETES MELLITUS
     Route: 065
  4. CARVEDILOL. [Concomitant]
     Active Substance: CARVEDILOL
     Indication: HYPERTENSION
     Route: 065
  5. FUROSEMIDE. [Concomitant]
     Active Substance: FUROSEMIDE
     Indication: ASCITES
     Route: 065
  6. ESPLERENONE [Concomitant]
     Indication: ASCITES
     Route: 065

REACTIONS (12)
  - Shock [Fatal]
  - Peritoneal haemorrhage [Unknown]
  - Abdominal distension [Unknown]
  - Rectal haemorrhage [Unknown]
  - Hypotension [Unknown]
  - Renal cancer [Unknown]
  - Haematuria [Unknown]
  - Coagulopathy [Fatal]
  - Anaemia [Unknown]
  - Abdominal pain [Unknown]
  - Metastases to peritoneum [Unknown]
  - Duodenal ulcer [Unknown]
